FAERS Safety Report 5792095-8 (Version None)
Quarter: 2008Q2

REPORT INFORMATION
  Report Type: 
  Country: None (occurrence: None)
  Receive Date: 20080625
  Receipt Date: 20080303
  Transmission Date: 20081010
  Serious: No
  Sender: FDA-Public Use
  Company Number: US-WYE-H02988208

PATIENT
  Age: 58 Year
  Sex: Female
  Weight: 110.32 kg

DRUGS (9)
  1. TORISEL [Suspect]
     Indication: RENAL CELL CARCINOMA
     Dosage: 25 MG 1X PER 1 WK, INTRAVENOUS; HOLD FOR 2 WEEKS
     Dates: start: 20071120
  2. PEPCID [Concomitant]
  3. ASPIRIN [Concomitant]
  4. EFFEXOR XR [Concomitant]
  5. BISOPROLOL FUMARATE AND HYDROCHLOROTHIAZIDE [Concomitant]
  6. PRAVASTATIN [Concomitant]
  7. BENADRYL [Concomitant]
  8. VITAMIN E [Concomitant]
  9. VITAMIN B6 (PYRIDOXINE HYDROCHLORIIDE) [Concomitant]

REACTIONS (1)
  - INTERSTITIAL LUNG DISEASE [None]
